FAERS Safety Report 5006855-4 (Version None)
Quarter: 2006Q2

REPORT INFORMATION
  Report Type: 
  Country: None (occurrence: None)
  Receive Date: 20060516
  Receipt Date: 20060505
  Transmission Date: 20061013
  Serious: Yes (Hospitalization)
  Sender: FDA-Public Use
  Company Number: TPA2005A01694

PATIENT
  Age: 76 Year
  Sex: Male

DRUGS (2)
  1. PIOGLITAZONE HCL [Suspect]
     Indication: DIABETES MELLITUS
     Dosage: 1 IN 1 D, PER ORAL
     Route: 048
     Dates: start: 20041103
  2. PIOGLITAZONE HCL [Suspect]
     Indication: PROPHYLAXIS
     Dosage: 1 IN 1 D, PER ORAL
     Route: 048
     Dates: start: 20041103

REACTIONS (1)
  - KNEE ARTHROPLASTY [None]
